FAERS Safety Report 7412780-1 (Version None)
Quarter: 2011Q2

REPORT INFORMATION
  Report Type: 
  Country: None (occurrence: None)
  Receive Date: 20110413
  Receipt Date: 20110405
  Transmission Date: 20111010
  Serious: Yes (Death)
  Sender: FDA-Public Use
  Company Number: A0922517A

PATIENT
  Sex: Female

DRUGS (1)
  1. AVANDIA [Suspect]

REACTIONS (2)
  - DEATH [None]
  - CARDIOVASCULAR DISORDER [None]
